FAERS Safety Report 11916083 (Version 2)
Quarter: 2016Q1

REPORT INFORMATION
  Report Type: Spontaneous
  Country: US (occurrence: US)
  Receive Date: 20160114
  Receipt Date: 20160121
  Transmission Date: 20160526
  Serious: No
  Sender: FDA-Public Use
  Company Number: US-AMGEN-USASP2016003120

PATIENT
  Age: 63 Year
  Sex: Male

DRUGS (2)
  1. ENBREL [Suspect]
     Active Substance: ETANERCEPT
     Indication: PSORIASIS
     Dosage: UNK UNK, QWK
     Route: 065
     Dates: start: 2013
  2. ENBREL [Suspect]
     Active Substance: ETANERCEPT
     Dosage: UNK UNK, QWK
     Route: 065

REACTIONS (6)
  - Injection site haemorrhage [Unknown]
  - Injury associated with device [Unknown]
  - Device issue [Unknown]
  - Incorrect product storage [Unknown]
  - Self-medication [Unknown]
  - Underdose [Unknown]
